FAERS Safety Report 7637003-X (Version None)
Quarter: 2011Q3

REPORT INFORMATION
  Report Type: 
  Country: None (occurrence: None)
  Receive Date: 20110726
  Receipt Date: 20110719
  Transmission Date: 20111222
  Serious: Yes (Other)
  Sender: FDA-Public Use
  Company Number: JP-PFIZER INC-2011154494

PATIENT
  Age: 82 Year
  Sex: Female
  Weight: 37.9 kg

DRUGS (13)
  1. AMIODARONE HCL [Suspect]
     Indication: ATRIAL FLUTTER
     Dosage: 100 MG DAILY
     Route: 048
     Dates: start: 20110518
  2. TRICHLORMETHIAZIDE [Concomitant]
     Dosage: UNK
  3. ZETIA [Concomitant]
     Dosage: UNK
  4. AMIODARONE HCL [Suspect]
     Indication: ATRIAL FIBRILLATION
  5. PIMOBENDAN [Concomitant]
     Dosage: UNK
  6. CRESTOR [Concomitant]
     Dosage: UNK
  7. VALSARTAN [Suspect]
     Indication: CARDIAC FAILURE CHRONIC
     Dosage: 40 MG, DAILY
     Route: 048
  8. ACETYLSALICYLIC ACID [Concomitant]
     Dosage: UNK
  9. JANUVIA [Concomitant]
     Dosage: UNK
  10. RABEPRAZOLE SODIUM [Concomitant]
     Dosage: UNK
  11. DEPAS [Concomitant]
     Dosage: UNK
  12. MUCOSTA [Concomitant]
     Dosage: UNK
  13. WARFARIN [Concomitant]
     Dosage: UNK

REACTIONS (1)
  - WHITE BLOOD CELL COUNT DECREASED [None]
